FAERS Safety Report 23350051 (Version 7)
Quarter: 2024Q3

REPORT INFORMATION
  Report Type: Spontaneous
  Country: GB (occurrence: GB)
  Receive Date: 20231229
  Receipt Date: 20240715
  Transmission Date: 20241017
  Serious: Yes (Hospitalization, Other)
  Sender: ACCORD
  Company Number: None

PATIENT
  Sex: Female

DRUGS (35)
  1. CARBOPLATIN [Suspect]
     Active Substance: CARBOPLATIN
     Indication: Metaplastic breast carcinoma
     Dosage: UNK, CYCLIC (4 CYCLES)
     Route: 065
     Dates: start: 2023, end: 2023
  2. PACLITAXEL [Suspect]
     Active Substance: PACLITAXEL
     Indication: Metaplastic breast carcinoma
     Dosage: UNK, CYCLIC (4 CYCLES)
     Route: 065
     Dates: start: 2023, end: 2023
  3. EPIRUBICIN [Suspect]
     Active Substance: EPIRUBICIN
     Indication: Metaplastic breast carcinoma
     Dosage: UNK, CYCLIC (4 CYCLES)
     Route: 065
     Dates: start: 2023
  4. CYCLOPHOSPHAMIDE [Suspect]
     Active Substance: CYCLOPHOSPHAMIDE
     Indication: Metaplastic breast carcinoma
     Dosage: UNK, CYCLIC (4 CYCLES)
     Route: 065
     Dates: start: 2023
  5. PEMBROLIZUMAB [Suspect]
     Active Substance: PEMBROLIZUMAB
     Indication: Triple negative breast cancer
     Dosage: UNK, CYCLIC (4 CYCLES)
     Route: 065
     Dates: start: 2023, end: 20230523
  6. CARBOPLATIN [Suspect]
     Active Substance: CARBOPLATIN
     Indication: Metaplastic breast carcinoma
     Dosage: UNK, CYCLE (3 CYCLE)
     Route: 065
  7. EPIRUBICIN [Suspect]
     Active Substance: EPIRUBICIN
     Indication: Metaplastic breast carcinoma
     Dosage: UNK, CYCLIC (4 CYCLES)
     Route: 065
  8. EPIRUBICIN [Suspect]
     Active Substance: EPIRUBICIN
     Indication: Metaplastic breast carcinoma
     Route: 065
  9. CYCLOPHOSPHAMIDE [Suspect]
     Active Substance: CYCLOPHOSPHAMIDE
     Indication: Metaplastic breast carcinoma
     Dosage: UNK, CYCLIC (4 CYCLES)
     Route: 065
  10. PEMBROLIZUMAB [Suspect]
     Active Substance: PEMBROLIZUMAB
     Indication: Triple negative breast cancer
     Dosage: UNK, CYCLIC (4 CYCLES)
     Route: 065
     Dates: start: 20230523, end: 202305
  11. PACLITAXEL [Suspect]
     Active Substance: PACLITAXEL
     Indication: Triple negative breast cancer
     Dosage: UNK, CYCLIC (3 CYCLES)
     Route: 065
     Dates: start: 2023
  12. PACLITAXEL [Suspect]
     Active Substance: PACLITAXEL
     Indication: Triple negative breast cancer
     Dosage: UNK, CYCLIC (4 CYCLES)
     Route: 065
     Dates: start: 2023, end: 2023
  13. PACLITAXEL [Suspect]
     Active Substance: PACLITAXEL
     Indication: Triple negative breast cancer
     Dosage: UNK, CYCLIC (4 CYCLES)
     Route: 065
     Dates: start: 2023
  14. EPIRUBICIN [Suspect]
     Active Substance: EPIRUBICIN
     Indication: Metaplastic breast carcinoma
     Dosage: UNK, CYCLIC (4 CYCLES)
     Route: 065
  15. EPIRUBICIN [Suspect]
     Active Substance: EPIRUBICIN
     Indication: Metaplastic breast carcinoma
     Dosage: UNK, CYCLIC (4 CYCLES)
     Route: 065
  16. EPIRUBICIN [Suspect]
     Active Substance: EPIRUBICIN
     Indication: Metaplastic breast carcinoma
     Dosage: UNK, CYCLIC (4 CYCLES)
     Route: 065
  17. EPIRUBICIN [Suspect]
     Active Substance: EPIRUBICIN
     Indication: Metaplastic breast carcinoma
     Dosage: UNK, CYCLIC (4 CYCLES)
     Route: 065
  18. CYCLOPHOSPHAMIDE [Suspect]
     Active Substance: CYCLOPHOSPHAMIDE
     Indication: Metaplastic breast carcinoma
     Dosage: UNK, CYCLIC (4 CYCLES)
     Route: 065
  19. CYCLOPHOSPHAMIDE [Suspect]
     Active Substance: CYCLOPHOSPHAMIDE
     Indication: Metaplastic breast carcinoma
     Dosage: UNK, CYCLIC (4 CYCLES)
     Route: 065
  20. CYCLOPHOSPHAMIDE [Suspect]
     Active Substance: CYCLOPHOSPHAMIDE
     Indication: Metaplastic breast carcinoma
     Dosage: UNK, CYCLIC (4 CYCLES)
     Route: 065
  21. CARBOPLATIN [Suspect]
     Active Substance: CARBOPLATIN
     Indication: Metaplastic breast carcinoma
     Dosage: UNK, CYCLIC (4 CYCLES)
     Route: 065
     Dates: start: 2023, end: 2023
  22. PACLITAXEL [Suspect]
     Active Substance: PACLITAXEL
     Indication: Metaplastic breast carcinoma
     Dosage: UNK, CYCLIC (4 CYCLES)
     Route: 065
     Dates: start: 2023
  23. PACLITAXEL [Suspect]
     Active Substance: PACLITAXEL
     Indication: Metaplastic breast carcinoma
     Dosage: UNK, CYCLIC (4 CYCLES)
     Route: 065
     Dates: start: 2023
  24. PACLITAXEL [Suspect]
     Active Substance: PACLITAXEL
     Indication: Metaplastic breast carcinoma
     Dosage: UNK, CYCLIC (4 CYCLES)
     Route: 065
     Dates: start: 2023
  25. PACLITAXEL [Suspect]
     Active Substance: PACLITAXEL
     Indication: Metaplastic breast carcinoma
     Dosage: UNK, CYCLIC (4 CYCLES)
     Route: 065
     Dates: start: 2023
  26. PACLITAXEL [Suspect]
     Active Substance: PACLITAXEL
     Indication: Metaplastic breast carcinoma
     Dosage: UNK, CYCLIC (3 CYCLES)
     Route: 065
     Dates: start: 2023
  27. PACLITAXEL [Suspect]
     Active Substance: PACLITAXEL
     Indication: Metaplastic breast carcinoma
     Route: 065
  28. PEMBROLIZUMAB [Suspect]
     Active Substance: PEMBROLIZUMAB
     Indication: Triple negative breast cancer
     Dosage: UNK, CYCLIC (4 CYCLES)
     Route: 065
     Dates: start: 20230523, end: 202305
  29. EPIRUBICIN [Suspect]
     Active Substance: EPIRUBICIN
     Indication: Triple negative breast cancer
     Dosage: UNK, CYCLIC (4 CYCLES)
     Route: 065
     Dates: start: 2023
  30. EPIRUBICIN [Suspect]
     Active Substance: EPIRUBICIN
     Indication: Triple negative breast cancer
     Dosage: UNK, CYCLIC (4 CYCLES)
     Route: 065
  31. CYCLOPHOSPHAMIDE [Suspect]
     Active Substance: CYCLOPHOSPHAMIDE
     Indication: Triple negative breast cancer
     Dosage: UNK, CYCLIC (4 CYCLES)
     Route: 065
     Dates: start: 2023
  32. CYCLOPHOSPHAMIDE [Suspect]
     Active Substance: CYCLOPHOSPHAMIDE
     Indication: Triple negative breast cancer
     Dosage: UNK, CYCLIC (4 CYCLES)
     Route: 065
  33. CARBOPLATIN [Suspect]
     Active Substance: CARBOPLATIN
     Indication: Metaplastic breast carcinoma
     Dosage: UNK, CYCLIC (4 CYCLES)
     Route: 065
     Dates: start: 2023
  34. PACLITAXEL [Suspect]
     Active Substance: PACLITAXEL
     Indication: Triple negative breast cancer
     Route: 065
     Dates: start: 2023, end: 2023
  35. PACLITAXEL [Suspect]
     Active Substance: PACLITAXEL
     Indication: Triple negative breast cancer
     Route: 065

REACTIONS (6)
  - Drug ineffective [Unknown]
  - Pneumonitis [Recovering/Resolving]
  - Hypertransaminasaemia [Recovering/Resolving]
  - Therapy non-responder [Unknown]
  - Hepatic function abnormal [Recovering/Resolving]
  - Neoplasm progression [Unknown]

NARRATIVE: CASE EVENT DATE: 20230101
